FAERS Safety Report 9541318 (Version 34)
Quarter: 2016Q4

REPORT INFORMATION
  Report Type: Report from Study
  Country: CA (occurrence: CA)
  Receive Date: 20130923
  Receipt Date: 20161214
  Transmission Date: 20170207
  Serious: Yes (Other)
  Sender: FDA-Public Use
  Company Number: CA-ROCHE-1266649

PATIENT
  Age: 54 Year
  Sex: Male
  Weight: 82 kg

DRUGS (15)
  1. ACTEMRA [Suspect]
     Active Substance: TOCILIZUMAB
     Route: 042
     Dates: start: 20151008
  2. ACTEMRA [Suspect]
     Active Substance: TOCILIZUMAB
     Route: 042
     Dates: start: 20160307
  3. PREDNISOLONE OPHTHALMIC [Suspect]
     Active Substance: PREDNISOLONE
     Indication: IRITIS
     Dosage: RIGHT EYE
     Route: 047
  4. SILDENAFIL. [Concomitant]
     Active Substance: SILDENAFIL
     Route: 065
  5. LANSOPRAZOLE. [Concomitant]
     Active Substance: LANSOPRAZOLE
  6. IBUPROFEN. [Concomitant]
     Active Substance: IBUPROFEN
  7. VENTOLIN [Concomitant]
     Active Substance: ALBUTEROL SULFATE
  8. ACTEMRA [Suspect]
     Active Substance: TOCILIZUMAB
     Indication: RHEUMATOID ARTHRITIS
     Dosage: HE HAD LAST INFUSION OF TOCILIZUMAB ON 11/SEP/2013?HE RECIEVED THE LAST TOCILIZUMAB INFUSION ON THE
     Route: 042
     Dates: start: 20130813
  9. RISEDRONATE [Concomitant]
     Active Substance: RISEDRONATE SODIUM
  10. FOLIC ACID. [Concomitant]
     Active Substance: FOLIC ACID
     Dosage: 8 TAB, DECREASE DOSAGE EVERY WEEK
     Route: 048
  11. TYLENOL [Concomitant]
     Active Substance: ACETAMINOPHEN
  12. CELEBREX [Concomitant]
     Active Substance: CELECOXIB
  13. ACTEMRA [Suspect]
     Active Substance: TOCILIZUMAB
     Indication: UVEITIS
     Route: 042
     Dates: start: 20150909
  14. NAPROXEN EC [Suspect]
     Active Substance: NAPROXEN
     Indication: PRODUCT USED FOR UNKNOWN INDICATION
     Route: 048
  15. METHOTREXATE. [Concomitant]
     Active Substance: METHOTREXATE

REACTIONS (20)
  - Pain [Unknown]
  - Joint swelling [Recovered/Resolved]
  - Urinary tract infection [Unknown]
  - Cystoscopy abnormal [Unknown]
  - Arthralgia [Unknown]
  - Cataract [Unknown]
  - Cystitis noninfective [Recovered/Resolved]
  - Weight increased [Recovered/Resolved]
  - Malaise [Unknown]
  - Inflammation [Recovered/Resolved]
  - Cystitis [Recovered/Resolved]
  - Blood urine present [Unknown]
  - Product use issue [Unknown]
  - Blood pressure increased [Unknown]
  - White blood cells urine [Unknown]
  - Urinary tract infection [Not Recovered/Not Resolved]
  - Bladder disorder [Unknown]
  - Heart rate decreased [Unknown]
  - Joint effusion [Unknown]
  - Infection [Unknown]

NARRATIVE: CASE EVENT DATE: 20130913
